FAERS Safety Report 9071330 (Version 1)
Quarter: 2013Q1

REPORT INFORMATION
  Report Type: Spontaneous
  Country: US (occurrence: US)
  Receive Date: 20130206
  Receipt Date: 20130206
  Transmission Date: 20140127
  Serious: No
  Sender: FDA-Public Use
  Company Number: US-ALLERGAN-1210488US

PATIENT
  Age: 54 Year
  Sex: Female

DRUGS (2)
  1. RESTASIS? [Suspect]
     Indication: WRONG DRUG ADMINISTERED
     Dosage: 2 TO 5 TIMES A DAY
     Route: 047
  2. REFRESH PLUS [Suspect]
     Indication: DRY EYE
     Dosage: 2- 5 TIMES A DAY, AS NEEDED
     Route: 047

REACTIONS (1)
  - Eye irritation [Recovered/Resolved]
